FAERS Safety Report 4441455-6 (Version None)
Quarter: 2004Q3

REPORT INFORMATION
  Report Type: 
  Country: None (occurrence: None)
  Receive Date: 20040728
  Receipt Date: 20040405
  Transmission Date: 20050211
  Serious: No
  Sender: FDA-Public Use
  Company Number: USA040464113

PATIENT
  Age: 12 Year
  Sex: Male

DRUGS (3)
  1. STRATTERA [Suspect]
     Indication: ATTENTION DEFICIT/HYPERACTIVITY DISORDER
     Dosage: 18 MG DAY
     Dates: start: 20040402
  2. TENEX [Concomitant]
  3. RISPERDAL [Concomitant]

REACTIONS (6)
  - AGGRESSION [None]
  - ANGER [None]
  - ANOREXIA [None]
  - CRYING [None]
  - FLATULENCE [None]
  - SELF INJURIOUS BEHAVIOUR [None]
